FAERS Safety Report 6738472-X (Version None)
Quarter: 2010Q2

REPORT INFORMATION
  Report Type: 
  Country: None (occurrence: None)
  Receive Date: 20100524
  Receipt Date: 20100511
  Transmission Date: 20101027
  Serious: Yes (Hospitalization, Other)
  Sender: FDA-Public Use
  Company Number: PHHY2010ES30241

PATIENT
  Sex: Female

DRUGS (6)
  1. DIOVAN HCT [Suspect]
     Indication: HYPERTENSION
     Dosage: 160/ 25 MG
     Route: 048
     Dates: start: 20070501, end: 20090705
  2. ACETYLSALICYLIC ACID [Concomitant]
     Dosage: 150 MG
     Route: 048
     Dates: start: 20070701
  3. PILOCARPINE HYDROCHLORIDE [Concomitant]
  4. BETAGAN [Concomitant]
  5. XALATAN [Concomitant]
  6. IDAPTAN [Concomitant]

REACTIONS (4)
  - DYSPHAGIA [None]
  - ILEOSTOMY [None]
  - NAUSEA [None]
  - RENAL FAILURE ACUTE [None]
